FAERS Safety Report 4971588-7 (Version None)
Quarter: 2006Q2

REPORT INFORMATION
  Report Type: 
  Country: None (occurrence: None)
  Receive Date: 20060406
  Receipt Date: 20060320
  Transmission Date: 20061013
  Serious: Yes (Hospitalization, Other)
  Sender: FDA-Public Use
  Company Number: JP200603005692

PATIENT
  Age: 74 Year
  Sex: Female

DRUGS (6)
  1. EVISTA [Suspect]
     Indication: OSTEOPOROSIS
     Dosage: 60 MG, DAILY (1/D) ORAL
     Route: 048
     Dates: end: 20060302
  2. ALFAROL (ALFACALCIDOL) [Concomitant]
  3. ASPARA-CA (ASPARTATE CALCIUM) [Concomitant]
  4. FAMOTIDINE [Concomitant]
  5. ETODOLAC [Concomitant]
  6. MUCOSTA (REBAMIPIDE) [Concomitant]

REACTIONS (2)
  - FEMORAL NECK FRACTURE [None]
  - PULMONARY EMBOLISM [None]
